FAERS Safety Report 18489943 (Version 2)
Quarter: 2020Q4

REPORT INFORMATION
  Report Type: Report from Study
  Country: US (occurrence: US)
  Receive Date: 20201111
  Receipt Date: 20201202
  Transmission Date: 20210114
  Serious: No
  Sender: FDA-Public Use
  Company Number: NVSC2020US294975

PATIENT
  Age: 35 Year
  Sex: Male

DRUGS (2)
  1. MAYZENT [Suspect]
     Active Substance: SIPONIMOD
     Dosage: 2 MG
     Route: 048
     Dates: start: 20201130, end: 20201130
  2. MAYZENT [Suspect]
     Active Substance: SIPONIMOD
     Indication: PRODUCT USED FOR UNKNOWN INDICATION
     Dosage: 2 MG, QD
     Route: 048

REACTIONS (5)
  - Head discomfort [Unknown]
  - Product dose omission issue [Unknown]
  - Anxiety [Unknown]
  - Crying [Unknown]
  - Thinking abnormal [Unknown]

NARRATIVE: CASE EVENT DATE: 20201130
